FAERS Safety Report 4901568-9 (Version None)
Quarter: 2006Q1

REPORT INFORMATION
  Report Type: 
  Country: None (occurrence: None)
  Receive Date: 20060206
  Receipt Date: 20050325
  Transmission Date: 20060701
  Serious: No
  Sender: FDA-Public Use
  Company Number: US-BRISTOL-MYERS SQUIBB COMPANY-12912408

PATIENT
  Sex: Male

DRUGS (2)
  1. TAXOL [Suspect]
  2. PLAVIX [Suspect]
     Route: 048

REACTIONS (3)
  - DIARRHOEA [None]
  - GASTROINTESTINAL DISORDER [None]
  - NEUROLOGICAL SYMPTOM [None]
